FAERS Safety Report 10617596 (Version 2)
Quarter: 2014Q4

REPORT INFORMATION
  Report Type: Report from Study
  Country: UY (occurrence: AR)
  Receive Date: 20141201
  Receipt Date: 20141201
  Transmission Date: 20150529
  Serious: Yes (Hospitalization)
  Sender: FDA-Public Use
  Company Number: UY-ABBVIE-14P-168-1297806-00

PATIENT
  Age: 57 Year
  Sex: Male

DRUGS (1)
  1. HUMIRA [Suspect]
     Active Substance: ADALIMUMAB
     Indication: RHEUMATOID ARTHRITIS
     Route: 058
     Dates: start: 20130901, end: 20141009

REACTIONS (4)
  - Rectal haemorrhage [Not Recovered/Not Resolved]
  - Rectal injury [Not Recovered/Not Resolved]
  - Colostomy [Unknown]
  - Neoplasm [Unknown]

NARRATIVE: CASE EVENT DATE: 20141009
